FAERS Safety Report 24713862 (Version 1)
Quarter: 2024Q4

REPORT INFORMATION
  Report Type: Spontaneous
  Country: US (occurrence: US)
  Receive Date: 20241209
  Receipt Date: 20241209
  Transmission Date: 20250115
  Serious: No
  Sender: REGENERON
  Company Number: US-REGENERON PHARMACEUTICALS, INC.-2024-067278

PATIENT
  Sex: Female

DRUGS (3)
  1. EYLEA [Suspect]
     Active Substance: AFLIBERCEPT
     Indication: Diabetic retinal oedema
     Dosage: 2 MG EVERY 4 WEEKS IN LEFT EYE (PATIENT ON TREATMENT FOR BOTH EYES); FORMULATION: GERRESHEIMER PFS
  2. EYLEA [Suspect]
     Active Substance: AFLIBERCEPT
     Indication: Diabetic retinopathy
     Dosage: 2 MG EVERY 4 WEEKS INTO RIGHT EYE (FORMULATION: GERRESHEIMER PFS)
     Dates: start: 20240311, end: 2024
  3. EYLEA [Suspect]
     Active Substance: AFLIBERCEPT
     Dosage: 2 MG EVERY 4 WEEKS INTO RIGHT EYE (FORMULATION: GERRESHEIMER PFS)
     Dates: start: 20240510

REACTIONS (1)
  - Intentional dose omission [Recovered/Resolved]

NARRATIVE: CASE EVENT DATE: 20240501
